FAERS Safety Report 14412976 (Version 2)
Quarter: 2018Q1

REPORT INFORMATION
  Report Type: Spontaneous
  Country: GR (occurrence: GR)
  Receive Date: 20180119
  Receipt Date: 20180306
  Transmission Date: 20180509
  Serious: Yes (Other)
  Sender: FDA-Public Use
  Company Number: PHHY2018GR006204

PATIENT
  Age: 4 Year
  Sex: Male

DRUGS (1)
  1. AMOXICILLIN + CLAVULANATE POTASSIUM [Suspect]
     Active Substance: AMOXICILLIN\CLAVULANATE POTASSIUM
     Indication: OTITIS MEDIA ACUTE
     Dosage: UNK
     Route: 065

REACTIONS (6)
  - Vomiting [Recovered/Resolved]
  - Drug ineffective [Unknown]
  - Headache [Unknown]
  - Gait disturbance [Recovered/Resolved]
  - Otitis media acute [Recovered/Resolved]
  - Subdural empyema [Unknown]
